FAERS Safety Report 4901224-7 (Version None)
Quarter: 2006Q1

REPORT INFORMATION
  Report Type: 
  Country: None (occurrence: None)
  Receive Date: 20060202
  Receipt Date: 20060118
  Transmission Date: 20060701
  Serious: Yes (Hospitalization, Other)
  Sender: FDA-Public Use
  Company Number: 2006BI001037

PATIENT
  Sex: Female
  Weight: 65.7716 kg

DRUGS (3)
  1. AVONEX [Suspect]
     Indication: MULTIPLE SCLEROSIS
     Dosage: 30 UG;QW;IM
     Route: 030
     Dates: start: 20020101
  2. AVONEX [Suspect]
     Indication: MULTIPLE SCLEROSIS
     Dosage: 30 UG;QW;IM
     Route: 030
  3. PREDNISONE [Concomitant]

REACTIONS (13)
  - BLOOD URINE PRESENT [None]
  - BURNING SENSATION [None]
  - CONVULSION [None]
  - DEPRESSION [None]
  - DIABETES MELLITUS [None]
  - FLUID RETENTION [None]
  - HYPOTENSION [None]
  - OSTEOPENIA [None]
  - PAIN [None]
  - PARAESTHESIA [None]
  - SLEEP DISORDER [None]
  - URINARY TRACT DISORDER [None]
  - URINARY TRACT INFECTION [None]
